FAERS Safety Report 14647125 (Version 1)
Quarter: 2018Q1

REPORT INFORMATION
  Report Type: Spontaneous
  Country: US (occurrence: US)
  Receive Date: 20180316
  Receipt Date: 20180316
  Transmission Date: 20180509
  Serious: Yes (Other)
  Sender: FDA-Public Use
  Company Number: US-BION-007039

PATIENT
  Sex: Female

DRUGS (1)
  1. LOPERAMIDE 2 MG SOFTGELS 6CT (BIONPHARMA) [Suspect]
     Active Substance: LOPERAMIDE
     Indication: DIARRHOEA
     Dosage: LOT NO: 120018943, 120018944, 120018945, 120018946
     Dates: start: 201706

REACTIONS (4)
  - Loss of consciousness [Unknown]
  - Intentional product misuse [Unknown]
  - Suicidal ideation [Unknown]
  - Alcohol use [None]
